FAERS Safety Report 20492960 (Version 1)
Quarter: 2022Q1

REPORT INFORMATION
  Report Type: Spontaneous
  Country: GB (occurrence: GB)
  Receive Date: 20220219
  Receipt Date: 20220219
  Transmission Date: 20220424
  Serious: Yes (Hospitalization)
  Sender: FDA-Public Use
  Company Number: None

PATIENT
  Sex: Female

DRUGS (7)
  1. LANSOPRAZOLE [Suspect]
     Active Substance: LANSOPRAZOLE
     Dosage: 1 BD AM/TEA - RXD 1 OM + HELD HYPONA, STRENGTH : 30 MG
     Route: 065
  2. LOSARTAN [Suspect]
     Active Substance: LOSARTAN
     Dosage: 50 MILLIGRAM DAILY; STRENGTH : 50 MG
     Route: 065
  3. ATORVASTATIN [Concomitant]
     Active Substance: ATORVASTATIN
     Dosage: 10 MILLIGRAM DAILY; STRENGTH : 10 MG
  4. BISOPROLOL [Concomitant]
     Active Substance: BISOPROLOL
     Dosage: 2.5 MILLIGRAM DAILY; STRENGTH : 1.25 MG
  5. CHOLECALCIFEROL [Concomitant]
     Active Substance: CHOLECALCIFEROL
  6. EDOXABAN [Concomitant]
     Active Substance: EDOXABAN
     Dosage: 30 MILLIGRAM DAILY; STRENGTH: 30 MG
  7. FUROSEMIDE [Concomitant]
     Active Substance: FUROSEMIDE
     Dosage: 40 MILLIGRAM DAILY; EVERY MORNING, STRENGTH : 40 MG

REACTIONS (1)
  - Hyponatraemia [Recovered/Resolved]
